FAERS Safety Report 16306173 (Version 2)
Quarter: 2020Q4

REPORT INFORMATION
  Report Type: Spontaneous
  Country: US (occurrence: US)
  Receive Date: 20190513
  Receipt Date: 20201223
  Transmission Date: 20210113
  Serious: Yes (Disabling, Other)
  Sender: FDA-Public Use
  Company Number: US-ASTRAZENECA-2019SE66038

PATIENT
  Age: 61 Year
  Sex: Male
  Weight: 101.2 kg

DRUGS (133)
  1. PREVACID 24 HR [Suspect]
     Active Substance: LANSOPRAZOLE
     Indication: GASTROOESOPHAGEAL REFLUX DISEASE
     Route: 065
     Dates: start: 1996, end: 2016
  2. BACTRIM [Concomitant]
     Active Substance: SULFAMETHOXAZOLE\TRIMETHOPRIM
     Indication: INFECTION
  3. ROPINIROLE. [Concomitant]
     Active Substance: ROPINIROLE
  4. DIAZEPAM. [Concomitant]
     Active Substance: DIAZEPAM
  5. OXYCODONE HYDROCHLORIDE. [Concomitant]
     Active Substance: OXYCODONE HYDROCHLORIDE
  6. HYDROXYZINE [Concomitant]
     Active Substance: HYDROXYZINE HYDROCHLORIDE
  7. NEO/POLY/DEX [Concomitant]
     Active Substance: DEXAMETHASONE\NEOMYCIN\POLYMYXIN B SULFATE
  8. LINEZOLID. [Concomitant]
     Active Substance: LINEZOLID
  9. AMLODIPINE BESYLATE. [Concomitant]
     Active Substance: AMLODIPINE BESYLATE
  10. SYMBICORT [Concomitant]
     Active Substance: BUDESONIDE\FORMOTEROL FUMARATE DIHYDRATE
  11. GENERLAC [Concomitant]
     Active Substance: LACTULOSE
  12. FOLIC ACID. [Concomitant]
     Active Substance: FOLIC ACID
  13. TRIAMCIN/ORABAS [Concomitant]
  14. CYMBALTA [Concomitant]
     Active Substance: DULOXETINE HYDROCHLORIDE
  15. DULOXETINE. [Concomitant]
     Active Substance: DULOXETINE
  16. CRESTOR [Concomitant]
     Active Substance: ROSUVASTATIN CALCIUM
  17. PROPRANOLOL [Concomitant]
     Active Substance: PROPRANOLOL HYDROCHLORIDE
  18. HYOSCYAMINE. [Concomitant]
     Active Substance: HYOSCYAMINE
  19. AMARYL [Concomitant]
     Active Substance: GLIMEPIRIDE
  20. ERYTHROMYCIN. [Concomitant]
     Active Substance: ERYTHROMYCIN
  21. PRILOSEC [Suspect]
     Active Substance: OMEPRAZOLE MAGNESIUM
     Indication: GASTROOESOPHAGEAL REFLUX DISEASE
     Route: 048
     Dates: start: 199001, end: 201401
  22. PRILOSEC OTC [Suspect]
     Active Substance: OMEPRAZOLE MAGNESIUM
     Indication: GASTROOESOPHAGEAL REFLUX DISEASE
     Route: 048
     Dates: start: 199001, end: 201401
  23. LASIX [Concomitant]
     Active Substance: FUROSEMIDE
     Indication: OEDEMA
  24. CALCIUM-MAG [Concomitant]
     Indication: GENERAL PHYSICAL CONDITION NORMAL
  25. RANITIDINE. [Concomitant]
     Active Substance: RANITIDINE
  26. MILK OF MAGNESIA [Concomitant]
     Active Substance: MAGNESIUM HYDROXIDE
  27. CLONAZEPAM. [Concomitant]
     Active Substance: CLONAZEPAM
  28. ALPRAZOLAM. [Concomitant]
     Active Substance: ALPRAZOLAM
  29. LOSARTAN HYDROCHLOROTHIAZIDE [Concomitant]
     Active Substance: HYDROCHLOROTHIAZIDE\LOSARTAN POTASSIUM
  30. CEFDINIR. [Concomitant]
     Active Substance: CEFDINIR
  31. CLOTRIMAZOLE AND BETAMETHASONE DIPROPIONATE [Concomitant]
     Active Substance: BETAMETHASONE\BETAMETHASONE DIPROPIONATE\CLOTRIMAZOLE
  32. SODIUM BICARBONATE. [Concomitant]
     Active Substance: SODIUM BICARBONATE
  33. LYRICA [Concomitant]
     Active Substance: PREGABALIN
  34. ESCITALOPRAM [Concomitant]
     Active Substance: ESCITALOPRAM OXALATE
  35. RAPAFLO [Concomitant]
     Active Substance: SILODOSIN
  36. ACETAMINOPHEN AND CODEINE [Concomitant]
     Active Substance: ACETAMINOPHEN\CODEINE PHOSPHATE
  37. LOSARTAN. [Concomitant]
     Active Substance: LOSARTAN
     Indication: BLOOD PRESSURE MEASUREMENT
  38. ADVIL [Concomitant]
     Active Substance: IBUPROFEN
     Indication: PAIN
  39. FAMOTIDINE. [Concomitant]
     Active Substance: FAMOTIDINE
  40. SIMVASTATIN. [Concomitant]
     Active Substance: SIMVASTATIN
  41. ZOVIRAX [Concomitant]
     Active Substance: ACYCLOVIR
  42. TRAJENTA [Concomitant]
     Active Substance: LINAGLIPTIN
  43. LEXAPRO [Concomitant]
     Active Substance: ESCITALOPRAM OXALATE
  44. PATADAY [Concomitant]
     Active Substance: OLOPATADINE HYDROCHLORIDE
  45. BISOPROLOL FUMARATE. [Concomitant]
     Active Substance: BISOPROLOL FUMARATE
  46. ALLOPURINOL. [Concomitant]
     Active Substance: ALLOPURINOL
  47. POTASSIUM CITRATE. [Concomitant]
     Active Substance: POTASSIUM CITRATE
  48. JANUMET [Concomitant]
     Active Substance: METFORMIN HYDROCHLORIDE\SITAGLIPTIN PHOSPHATE
  49. ZOSTAVAX [Concomitant]
     Active Substance: VARICELLA-ZOSTER VIRUS STRAIN OKA/MERCK LIVE ANTIGEN
  50. FLORANEX [Concomitant]
     Active Substance: LACTOBACILLUS ACIDOPHILUS\LACTOBACILLUS DELBRUECKII SUBSP. BULGARICUS
  51. METHYLPREDNISOLONE. [Concomitant]
     Active Substance: METHYLPREDNISOLONE
  52. BYDUREON [Concomitant]
     Active Substance: EXENATIDE
  53. MAGNESIUM OXIDE. [Concomitant]
     Active Substance: MAGNESIUM OXIDE
  54. NYSTATIN/TRIAMCINOLONE [Concomitant]
     Active Substance: NYSTATIN\TRIAMCINOLONE
  55. GENTAMICIN. [Concomitant]
     Active Substance: GENTAMICIN
     Indication: BIOPSY
  56. MYLANTA [Concomitant]
     Active Substance: ALUMINUM HYDROXIDE\DIMETHICONE\MAGNESIUM HYDROXIDE
  57. CALCITRIOL. [Concomitant]
     Active Substance: CALCITRIOL
  58. DIOVAN [Concomitant]
     Active Substance: VALSARTAN
  59. CIPROFLOXACIN. [Concomitant]
     Active Substance: CIPROFLOXACIN
  60. ZOLOFT [Concomitant]
     Active Substance: SERTRALINE HYDROCHLORIDE
  61. TOPAMAX [Concomitant]
     Active Substance: TOPIRAMATE
  62. OXYCODONE-ACETAMINOPHEN [Concomitant]
     Active Substance: ACETAMINOPHEN\OXYCODONE HYDROCHLORIDE
  63. ALPHAGAN P [Concomitant]
     Active Substance: BRIMONIDINE TARTRATE
  64. LANTUS SOLOSTAR [Concomitant]
     Active Substance: INSULIN GLARGINE
  65. LAC-HYDRIN [Concomitant]
     Active Substance: AMMONIUM LACTATE
  66. CHERATUSSIN [Concomitant]
     Active Substance: AMMONIUM CHLORIDE\DEXTROMETHORPHAN\SODIUM CITRATE
  67. TAMIFLU [Concomitant]
     Active Substance: OSELTAMIVIR PHOSPHATE
  68. ACTONEL [Concomitant]
     Active Substance: RISEDRONATE SODIUM
  69. METOCLOPRAMIDE. [Concomitant]
     Active Substance: METOCLOPRAMIDE
  70. AMITRIPTYLINE [Concomitant]
     Active Substance: AMITRIPTYLINE
  71. NEOMYCIN. [Concomitant]
     Active Substance: NEOMYCIN
  72. LEVAQUIN [Concomitant]
     Active Substance: LEVOFLOXACIN
     Indication: BIOPSY
  73. ALKA-SELTZER [Concomitant]
     Active Substance: ANHYDROUS CITRIC ACID\ASPIRIN\SODIUM BICARBONATE
  74. NAPROXEN. [Concomitant]
     Active Substance: NAPROXEN
  75. PHENAZOPYRIDINE. [Concomitant]
     Active Substance: PHENAZOPYRIDINE
  76. PROCHLORPERAZINE. [Concomitant]
     Active Substance: PROCHLORPERAZINE
  77. CHLORPROMAZIN [Concomitant]
  78. QUETIAPINE. [Concomitant]
     Active Substance: QUETIAPINE
  79. HYDROMORPHONE [Concomitant]
     Active Substance: HYDROMORPHONE
  80. DOXYCYCLINE HYCLATE. [Concomitant]
     Active Substance: DOXYCYCLINE HYCLATE
  81. LANTANOPROST [Concomitant]
     Active Substance: LATANOPROST
  82. ONDANSETRON [Concomitant]
     Active Substance: ONDANSETRON
  83. BUTALBITAL/ACETAMINOPHEN/CAFF [Concomitant]
  84. GABAPENTIN. [Concomitant]
     Active Substance: GABAPENTIN
  85. JANUVIA [Concomitant]
     Active Substance: SITAGLIPTIN PHOSPHATE
  86. PYRIDIUM [Concomitant]
     Active Substance: PHENAZOPYRIDINE
  87. FEXOFENADINE [Concomitant]
     Active Substance: FEXOFENADINE HYDROCHLORIDE
  88. URIBEL [Concomitant]
     Active Substance: HYOSCYAMINE SULFATE\METHENAMINE\METHYLENE BLUE\PHENYL SALICYLATE\SODIUM PHOSPHATE, MONOBASIC, MONOHYDRATE
  89. AVANDARYL [Concomitant]
     Active Substance: GLIMEPIRIDE\ROSIGLITAZONE MALEATE
  90. NEXIUM [Suspect]
     Active Substance: ESOMEPRAZOLE MAGNESIUM
     Route: 048
     Dates: start: 199001, end: 201401
  91. PRILOSEC [Suspect]
     Active Substance: OMEPRAZOLE MAGNESIUM
     Indication: GASTROOESOPHAGEAL REFLUX DISEASE
     Dosage: GENERIC
     Route: 065
     Dates: start: 1982, end: 20180725
  92. PRILOSEC OTC [Suspect]
     Active Substance: OMEPRAZOLE MAGNESIUM
     Indication: GASTROOESOPHAGEAL REFLUX DISEASE
     Route: 048
     Dates: start: 1991, end: 201606
  93. PREVACID [Suspect]
     Active Substance: LANSOPRAZOLE
     Route: 065
     Dates: start: 199001, end: 201401
  94. AZITHROMYCIN ANHYDROUS. [Concomitant]
     Active Substance: AZITHROMYCIN ANHYDROUS
     Indication: INFECTION
  95. TUMS [Concomitant]
     Active Substance: CALCIUM CARBONATE
  96. SEROQUEL [Concomitant]
     Active Substance: QUETIAPINE FUMARATE
  97. BENZONATATE. [Concomitant]
     Active Substance: BENZONATATE
  98. LEVEMIR [Concomitant]
     Active Substance: INSULIN DETEMIR
  99. MINOCYCLINE [Concomitant]
     Active Substance: MINOCYCLINE HYDROCHLORIDE
  100. IPRATROPIUM [Concomitant]
     Active Substance: IPRATROPIUM
  101. HEMAX [Concomitant]
  102. GENTAMICIN. [Concomitant]
     Active Substance: GENTAMICIN
     Indication: DIALYSIS
  103. BENADRYL [Concomitant]
     Active Substance: DIPHENHYDRAMINE HYDROCHLORIDE
     Indication: MULTIPLE ALLERGIES
  104. VITAMIN D3 [Concomitant]
     Active Substance: CHOLECALCIFEROL
     Indication: GENERAL PHYSICAL CONDITION NORMAL
  105. ZANTAC [Concomitant]
     Active Substance: RANITIDINE HYDROCHLORIDE
  106. DARBEPOETIN [Concomitant]
     Active Substance: DARBEPOETIN ALFA
  107. MICARDIS [Concomitant]
     Active Substance: TELMISARTAN
  108. VYTORIN [Concomitant]
     Active Substance: EZETIMIBE\SIMVASTATIN
  109. LORAZEPAM. [Concomitant]
     Active Substance: LORAZEPAM
  110. MECLIZINE [Concomitant]
     Active Substance: MECLIZINE HYDROCHLORIDE
  111. ZETIA [Concomitant]
     Active Substance: EZETIMIBE
  112. NITROFURANTOIN. [Concomitant]
     Active Substance: NITROFURANTOIN
  113. ALENDRONATE SODIUM. [Concomitant]
     Active Substance: ALENDRONATE SODIUM
  114. ZALEPLON. [Concomitant]
     Active Substance: ZALEPLON
  115. DOCQLACE [Concomitant]
     Active Substance: DOCUSATE SODIUM
  116. PROAIR HFA [Concomitant]
     Active Substance: ALBUTEROL SULFATE
  117. CICLOPIROX. [Concomitant]
     Active Substance: CICLOPIROX
  118. CYANOCOBALAMIN. [Concomitant]
     Active Substance: CYANOCOBALAMIN
  119. INTEGRA [Concomitant]
     Active Substance: DIETARY SUPPLEMENT
  120. NABUMETONE. [Concomitant]
     Active Substance: NABUMETONE
  121. HEPARIN [Concomitant]
     Active Substance: HEPARIN SODIUM
  122. NEXIUM 24HR [Suspect]
     Active Substance: ESOMEPRAZOLE MAGNESIUM
     Indication: GASTROOESOPHAGEAL REFLUX DISEASE
     Route: 048
     Dates: start: 2001, end: 2006
  123. TACROLIMUS. [Concomitant]
     Active Substance: TACROLIMUS
     Indication: TRANSPLANT
  124. ASPIRIN. [Concomitant]
     Active Substance: ASPIRIN
     Indication: PAIN
  125. PEPTO-BISMOL [Concomitant]
     Active Substance: BISMUTH SUBSALICYLATE
  126. BENICAR [Concomitant]
     Active Substance: OLMESARTAN MEDOXOMIL
  127. LORTAB [Concomitant]
     Active Substance: ACETAMINOPHEN\HYDROCODONE BITARTRATE
  128. AMBIEN [Concomitant]
     Active Substance: ZOLPIDEM TARTRATE
  129. MIRTAZAPINE. [Concomitant]
     Active Substance: MIRTAZAPINE
  130. LINZESS [Concomitant]
     Active Substance: LINACLOTIDE
  131. POLYETHYLENE GLYCOL [Concomitant]
     Active Substance: POLYETHYLENE GLYCOLS
  132. ZUTRIPRO [Concomitant]
     Active Substance: CHLORPHENIRAMINE MALEATE\HYDROCODONE BITARTRATE\PSEUDOEPHEDRINE HYDROCHLORIDE
  133. GLUCOSE [Concomitant]
     Active Substance: DEXTROSE

REACTIONS (7)
  - Chronic kidney disease-mineral and bone disorder [Unknown]
  - Hyperparathyroidism secondary [Unknown]
  - Gastrooesophageal reflux disease [Not Recovered/Not Resolved]
  - Renal failure [Unknown]
  - Nephrogenic anaemia [Unknown]
  - Chronic kidney disease [Not Recovered/Not Resolved]
  - End stage renal disease [Not Recovered/Not Resolved]

NARRATIVE: CASE EVENT DATE: 2013
